FAERS Safety Report 21539103 (Version 1)
Quarter: 2022Q4

REPORT INFORMATION
  Report Type: Report from Study
  Country: US (occurrence: US)
  Receive Date: 20221102
  Receipt Date: 20221102
  Transmission Date: 20230113
  Serious: No
  Sender: FDA-Public Use
  Company Number: US-ABBVIE-4152595

PATIENT
  Sex: Male

DRUGS (1)
  1. RINVOQ [Suspect]
     Active Substance: UPADACITINIB
     Indication: Rheumatoid arthritis
     Route: 048

REACTIONS (6)
  - Urticaria [Not Recovered/Not Resolved]
  - Joint warmth [Recovering/Resolving]
  - Back pain [Recovered/Resolved]
  - Night sweats [Unknown]
  - Hypersensitivity [Unknown]
  - Middle insomnia [Unknown]
